FAERS Safety Report 8448893-5 (Version None)
Quarter: 2012Q2

REPORT INFORMATION
  Report Type: 
  Country: None (occurrence: None)
  Receive Date: 20120619
  Receipt Date: 20120608
  Transmission Date: 20120825
  Serious: Yes (Other)
  Sender: FDA-Public Use
  Company Number: CA-GLAXOSMITHKLINE-A0980515A

PATIENT
  Age: 88 Year
  Sex: Male

DRUGS (1)
  1. VALTREX [Suspect]
     Indication: HERPES OPHTHALMIC
     Dosage: 1G THREE TIMES PER DAY
     Route: 048
     Dates: start: 20120601

REACTIONS (5)
  - FALL [None]
  - FATIGUE [None]
  - DIZZINESS [None]
  - LETHARGY [None]
  - CONFUSIONAL STATE [None]
